FAERS Safety Report 7241265-0 (Version None)
Quarter: 2011Q1

REPORT INFORMATION
  Report Type: 
  Country: None (occurrence: None)
  Receive Date: 20110124
  Receipt Date: 20110118
  Transmission Date: 20110831
  Serious: Yes (Disabling)
  Sender: FDA-Public Use
  Company Number: A0906919A

PATIENT
  Sex: Female

DRUGS (2)
  1. NO CONCURRENT MEDICATION [Concomitant]
  2. TYKERB [Suspect]
     Indication: BREAST CANCER
     Dosage: 3TAB TWICE PER DAY
     Route: 048

REACTIONS (2)
  - URTICARIA [None]
  - DYSPHAGIA [None]
